FAERS Safety Report 18390728 (Version 1)
Quarter: 2020Q4

REPORT INFORMATION
  Report Type: Spontaneous
  Country: ES (occurrence: ES)
  Receive Date: 20201016
  Receipt Date: 20201016
  Transmission Date: 20210114
  Serious: Yes (Hospitalization)
  Sender: FDA-Public Use
  Company Number: ES-B.I. PHARMACEUTICALS,INC./RIDGEFIELD-2020-BI-053911

PATIENT
  Age: 68 Year
  Sex: Male

DRUGS (3)
  1. HIBOR (BEMIPARIN SODIUM) [Suspect]
     Active Substance: BEMIPARIN SODIUM
     Indication: PRODUCT USED FOR UNKNOWN INDICATION
     Dosage: 1 INJECTION DAY, 3.500 UI ANTI XA/0,2 ML SOLUCION INYECTABLE EN JERINGAS PRECARGADAS , 2 JERINGAS PR
     Route: 058
     Dates: start: 20150616
  2. PERSANTIN [Suspect]
     Active Substance: DIPYRIDAMOLE
     Indication: PRODUCT USED FOR UNKNOWN INDICATION
     Dosage: 100 MG (1-1-1)
     Route: 048
     Dates: start: 20110301
  3. AMOXICILINA/ CLAVULONICO [Concomitant]
     Active Substance: AMOXICILLIN\CLAVULANATE POTASSIUM
     Indication: PRODUCT USED FOR UNKNOWN INDICATION
     Dosage: 1-1-1,  500/125 MG
     Route: 048
     Dates: start: 20200604, end: 20200608

REACTIONS (1)
  - Anaemia [Recovered/Resolved]

NARRATIVE: CASE EVENT DATE: 20200608
